FAERS Safety Report 9454381 (Version 2)
Quarter: 2013Q3

REPORT INFORMATION
  Report Type: Spontaneous
  Country: US (occurrence: US)
  Receive Date: 20130812
  Receipt Date: 20130918
  Transmission Date: 20140515
  Serious: No
  Sender: FDA-Public Use
  Company Number: US-009507513-1308USA005193

PATIENT
  Age: 4 Year
  Sex: Female
  Weight: 24.49 kg

DRUGS (8)
  1. MIRALAX [Suspect]
     Indication: CYSTIC FIBROSIS
     Dosage: 17 G, QD
     Route: 048
     Dates: start: 201101
  2. CREON (PANCREATIN) [Concomitant]
     Indication: PANCREATIC INSUFFICIENCY
     Dosage: UNK, UNKNOWN
  3. ZANTAC [Concomitant]
     Indication: GASTROOESOPHAGEAL REFLUX DISEASE
     Dosage: 75 MG, QD
  4. ZYRTEC [Concomitant]
     Indication: HYPERSENSITIVITY
     Dosage: 10 MG, QD
  5. DULERA [Concomitant]
     Indication: CYSTIC FIBROSIS
     Dosage: UNK, BID
  6. PULMOZYME [Concomitant]
     Indication: CYSTIC FIBROSIS
     Dosage: UNK, QD
  7. VITAMAX FISH OIL [Concomitant]
     Indication: CYSTIC FIBROSIS
     Dosage: UNK, UNKNOWN
  8. VITAMIN A [Concomitant]
     Indication: CYSTIC FIBROSIS
     Dosage: UNK, QD

REACTIONS (3)
  - Drug administered to patient of inappropriate age [Unknown]
  - Incorrect drug administration duration [Unknown]
  - Off label use [Unknown]
